FAERS Safety Report 6309389-X (Version None)
Quarter: 2009Q3

REPORT INFORMATION
  Report Type: 
  Country: None (occurrence: None)
  Receive Date: 20090814
  Receipt Date: 20090803
  Transmission Date: 20100115
  Serious: Yes (Hospitalization)
  Sender: FDA-Public Use
  Company Number: AU-ROCHE-647832

PATIENT
  Sex: Male

DRUGS (3)
  1. MYCOPHENOLATE MOFETIL [Suspect]
     Route: 065
     Dates: start: 20061128
  2. CYCLOSPORINE [Suspect]
     Route: 048
     Dates: start: 20061127
  3. PREDNISONE [Suspect]
     Route: 065
     Dates: start: 20090415

REACTIONS (3)
  - ABDOMINAL HERNIA [None]
  - LOCALISED INTRAABDOMINAL FLUID COLLECTION [None]
  - URINARY TRACT INFECTION [None]
